FAERS Safety Report 25386427 (Version 1)
Quarter: 2025Q2

REPORT INFORMATION
  Report Type: Spontaneous
  Country: MX (occurrence: MX)
  Receive Date: 20250602
  Receipt Date: 20250602
  Transmission Date: 20250717
  Serious: Yes (Other)
  Sender: BIOMARIN
  Company Number: MX-BIOMARINAP-MX-2025-166221

PATIENT

DRUGS (1)
  1. VOXZOGO [Suspect]
     Active Substance: VOSORITIDE
     Indication: Osteochondrodysplasia
     Dosage: UNK, QW
     Route: 058
     Dates: start: 20250501, end: 20250514

REACTIONS (4)
  - Foramen magnum stenosis [Unknown]
  - Pallor [Recovering/Resolving]
  - Lip discolouration [Recovering/Resolving]
  - Blood pressure decreased [Recovering/Resolving]

NARRATIVE: CASE EVENT DATE: 20250518
